FAERS Safety Report 6279863-3 (Version None)
Quarter: 2009Q3

REPORT INFORMATION
  Report Type: 
  Country: None (occurrence: None)
  Receive Date: 20090723
  Receipt Date: 20090716
  Transmission Date: 20100115
  Serious: Yes (Death, Other)
  Sender: FDA-Public Use
  Company Number: PHHY2009US29418

PATIENT
  Age: 56 Year
  Sex: Female

DRUGS (4)
  1. CYCLOSPORINE [Suspect]
     Indication: HEART TRANSPLANT
  2. PREDNISONE TAB [Suspect]
     Indication: HEART TRANSPLANT
  3. MYCOPHENOLATE MOFETIL [Suspect]
     Indication: HEART TRANSPLANT
  4. SULFAMETHOXAZOLE AND TRIMETHOPRIM [Concomitant]

REACTIONS (5)
  - BRONCHOPULMONARY ASPERGILLOSIS [None]
  - CARDIAC FAILURE [None]
  - CYTOMEGALOVIRUS CHORIORETINITIS [None]
  - CYTOMEGALOVIRUS DUODENITIS [None]
  - CYTOMEGALOVIRUS GASTRITIS [None]
